FAERS Safety Report 20808628 (Version 1)
Quarter: 2022Q2

REPORT INFORMATION
  Report Type: Spontaneous
  Country: US (occurrence: US)
  Receive Date: 20220510
  Receipt Date: 20220510
  Transmission Date: 20220720
  Serious: Yes (Hospitalization)
  Sender: FDA-Public Use
  Company Number: US-PFIZER INC-202200650303

PATIENT
  Age: 79 Year
  Sex: Male
  Weight: 108.86 kg

DRUGS (1)
  1. QUINAPRIL [Suspect]
     Active Substance: QUINAPRIL
     Indication: Hypertension
     Dosage: UNK
     Route: 048

REACTIONS (3)
  - Bladder cancer [Recovered/Resolved with Sequelae]
  - Neoplasm recurrence [Unknown]
  - Recalled product administered [Unknown]

NARRATIVE: CASE EVENT DATE: 20200501
